FAERS Safety Report 13269526 (Version 1)
Quarter: 2017Q1

REPORT INFORMATION
  Report Type: Spontaneous
  Country: US (occurrence: US)
  Receive Date: 20170224
  Receipt Date: 20170224
  Transmission Date: 20170428
  Serious: Yes (Other)
  Sender: FDA-Public Use
  Company Number: US-CELGENEUS-USA-2016023820

PATIENT

DRUGS (9)
  1. MOR208 [Suspect]
     Active Substance: INVESTIGATIONAL PRODUCT
     Dosage: 9 MILLIGRAM/KILOGRAM
     Route: 065
  2. REVLIMID [Suspect]
     Active Substance: LENALIDOMIDE
     Dosage: UP TO 10 MG
     Route: 048
  3. MOR208 [Suspect]
     Active Substance: INVESTIGATIONAL PRODUCT
     Dosage: 9 MILLIGRAM/KILOGRAM
     Route: 065
  4. IBRUTINIB [Suspect]
     Active Substance: IBRUTINIB
     Indication: CHRONIC LYMPHOCYTIC LEUKAEMIA REFRACTORY
     Dosage: 420 MILLIGRAM
     Route: 065
  5. MOR208 [Suspect]
     Active Substance: INVESTIGATIONAL PRODUCT
     Dosage: 12 MILLIGRAM/KILOGRAM
     Route: 065
  6. REVLIMID [Suspect]
     Active Substance: LENALIDOMIDE
     Indication: CHRONIC LYMPHOCYTIC LEUKAEMIA REFRACTORY
     Dosage: 2.5 MILLIGRAM
     Route: 048
  7. MOR208 [Suspect]
     Active Substance: INVESTIGATIONAL PRODUCT
     Dosage: 12 MILLIGRAM/KILOGRAM
     Route: 065
  8. MOR208 [Suspect]
     Active Substance: INVESTIGATIONAL PRODUCT
     Dosage: 12 MILLIGRAM/KILOGRAM
     Route: 065
  9. MOR208 [Suspect]
     Active Substance: INVESTIGATIONAL PRODUCT
     Indication: CHRONIC LYMPHOCYTIC LEUKAEMIA REFRACTORY
     Dosage: 1 MILLIGRAM/KILOGRAM
     Route: 065

REACTIONS (20)
  - Hypertension [Unknown]
  - Infusion related reaction [Unknown]
  - Neutropenia [Unknown]
  - Fatigue [Unknown]
  - Infection [Unknown]
  - Hypercalcaemia [Unknown]
  - Anaemia [Unknown]
  - Device related infection [Unknown]
  - Sepsis [Unknown]
  - Hyponatraemia [Unknown]
  - Respiratory failure [Unknown]
  - Hyperglycaemia [Unknown]
  - Upper respiratory tract infection [Unknown]
  - Sinusitis [Unknown]
  - Dyspnoea [Unknown]
  - Rash [Unknown]
  - Cytopenia [Unknown]
  - Colitis [Unknown]
  - Thrombocytopenia [Unknown]
  - Hypophosphataemia [Unknown]
